FAERS Safety Report 9898508 (Version 3)
Quarter: 2014Q1

REPORT INFORMATION
  Report Type: Spontaneous
  Country: US (occurrence: US)
  Receive Date: 20140214
  Receipt Date: 20140312
  Transmission Date: 20141002
  Serious: Yes (Other)
  Sender: FDA-Public Use
  Company Number: US-BAXTER-2014BAX007052

PATIENT
  Sex: Male

DRUGS (3)
  1. DIANEAL LOW CALCIUM [Suspect]
     Indication: RENAL FAILURE CHRONIC
     Route: 033
     Dates: start: 201311, end: 20140206
  2. DIANEAL LOW CALCIUM [Suspect]
     Indication: RENAL FAILURE CHRONIC
     Route: 033
     Dates: start: 201311, end: 20140206
  3. DIANEAL LOW CALCIUM [Suspect]
     Indication: RENAL FAILURE CHRONIC
     Route: 033
     Dates: start: 201311, end: 20140206

REACTIONS (6)
  - Pneumothorax [Unknown]
  - Pulmonary oedema [Recovering/Resolving]
  - Pleuroperitoneal communication [Unknown]
  - Peritoneal disorder [Unknown]
  - Peritoneal dialysis complication [Not Recovered/Not Resolved]
  - Malaise [Unknown]
